FAERS Safety Report 8086085-2 (Version None)
Quarter: 2012Q1

REPORT INFORMATION
  Report Type: 
  Country: None (occurrence: None)
  Receive Date: 20120128
  Receipt Date: 20110601
  Transmission Date: 20120608
  Serious: No
  Sender: FDA-Public Use
  Company Number: US-ABBOTT-11P-163-0730132-00

PATIENT
  Sex: Female
  Weight: 52.21 kg

DRUGS (7)
  1. IBUPROFEN [Concomitant]
     Indication: HEADACHE
  2. HUMIRA [Suspect]
     Indication: GUTTATE PSORIASIS
     Route: 058
     Dates: start: 20110301
  3. VYVANSE [Concomitant]
     Indication: APATHY
  4. IBUPROFEN [Concomitant]
  5. FLUOXETINE [Concomitant]
     Indication: MOOD ALTERED
  6. VYVANSE [Concomitant]
     Indication: ASTHENIA
  7. MULTI-VITAMIN [Concomitant]
     Indication: PRODUCT USED FOR UNKNOWN INDICATION

REACTIONS (2)
  - INJECTION SITE HAEMATOMA [None]
  - INJECTION SITE PAIN [None]
